FAERS Safety Report 15572915 (Version 4)
Quarter: 2019Q1

REPORT INFORMATION
  Report Type: Report from Study
  Country: US (occurrence: US)
  Receive Date: 20181031
  Receipt Date: 20190308
  Transmission Date: 20190417
  Serious: Yes (Hospitalization, Other)
  Sender: FDA-Public Use
  Company Number: US-TESAROUBC-US-2018TSO03048

PATIENT
  Age: 69 Year
  Sex: Female

DRUGS (2)
  1. ZEJULA [Suspect]
     Active Substance: NIRAPARIB
     Dosage: 300 MG, QPM WITH FOOD
     Route: 065
     Dates: start: 2018
  2. ZEJULA [Suspect]
     Active Substance: NIRAPARIB
     Indication: OVARIAN CANCER
     Dosage: 300 MG, QD
     Route: 048
     Dates: start: 20180508, end: 20180614

REACTIONS (12)
  - Recurrent cancer [Not Recovered/Not Resolved]
  - Flatulence [Recovering/Resolving]
  - Hyperhidrosis [Not Recovered/Not Resolved]
  - Blood creatinine increased [Not Recovered/Not Resolved]
  - Asthenia [Unknown]
  - Complication associated with device [Not Recovered/Not Resolved]
  - Fatigue [Not Recovered/Not Resolved]
  - Gait disturbance [Unknown]
  - Pyrexia [Not Recovered/Not Resolved]
  - Nasopharyngitis [Recovered/Resolved]
  - Renal impairment [Not Recovered/Not Resolved]
  - Urinary tract infection [Not Recovered/Not Resolved]

NARRATIVE: CASE EVENT DATE: 201805
